FAERS Safety Report 19368616 (Version 2)
Quarter: 2025Q4

REPORT INFORMATION
  Report Type: Spontaneous
  Country: EU (occurrence: EU)
  Receive Date: 20210602
  Receipt Date: 20251111
  Transmission Date: 20260118
  Serious: Yes (Other)
  Sender: SANOFI AVENTIS
  Company Number: EU-SA-2021SA166662

PATIENT
  Age: 54 Year
  Sex: Female

DRUGS (7)
  1. DOCETAXEL [Suspect]
     Active Substance: DOCETAXEL
     Indication: HER2 positive breast cancer
     Dosage: 75 MG/M2, QCY
     Route: 042
     Dates: end: 201507
  2. DOCETAXEL [Suspect]
     Active Substance: DOCETAXEL
     Indication: Breast cancer metastatic
     Dosage: 90 MG/M2, QCY
     Route: 042
  3. TRASTUZUMAB [Suspect]
     Active Substance: TRASTUZUMAB
     Indication: Breast cancer metastatic
     Dosage: 6 MG/KG, QCY
     Route: 042
     Dates: end: 201105
  4. TRASTUZUMAB [Suspect]
     Active Substance: TRASTUZUMAB
     Indication: HER2 positive breast cancer
     Dosage: 8 MG/KG, QCY
     Route: 042
  5. LETROZOLE [Suspect]
     Active Substance: LETROZOLE
     Indication: Hormone therapy
     Dosage: 2.5 MG, QD
  6. PERTUZUMAB [Suspect]
     Active Substance: PERTUZUMAB
     Indication: HER2 positive breast cancer
     Dosage: 420 MG, QCY
     Route: 042
  7. PERTUZUMAB [Suspect]
     Active Substance: PERTUZUMAB
     Indication: Breast cancer metastatic

REACTIONS (10)
  - Neuropathy peripheral [Unknown]
  - Asthenia [Unknown]
  - Fatigue [Unknown]
  - Nail disorder [Unknown]
  - Haematotoxicity [Unknown]
  - Diarrhoea [Unknown]
  - Alopecia [Unknown]
  - Joint stiffness [Unknown]
  - Myalgia [Unknown]
  - Arthralgia [Unknown]

NARRATIVE: CASE EVENT DATE: 20150101
